FAERS Safety Report 8669912 (Version 2)
Quarter: 2012Q4

REPORT INFORMATION
  Report Type: 
  Country: US (occurrence: US)
  Receive Date: 20120718
  Receipt Date: 20120910
  Transmission Date: 20130627
  Serious: Yes (Other)
  Sender: FDA-Public Use
  Company Number: US-BRISTOL-MYERS SQUIBB COMPANY-16756645

PATIENT
  Age: 65 Year
  Sex: Female
  Weight: 48 kg

DRUGS (1)
  1. ORENCIA [Suspect]
     Indication: RHEUMATOID ARTHRITIS
     Dosage: last inf:21Jun12
     Route: 042

REACTIONS (1)
  - Meniscus injury [Unknown]
